FAERS Safety Report 5172486-9 (Version None)
Quarter: 2006Q4

REPORT INFORMATION
  Report Type: 
  Country: None (occurrence: None)
  Receive Date: 20061205
  Receipt Date: 20061129
  Transmission Date: 20070319
  Serious: No
  Sender: FDA-Public Use
  Company Number: E2020-00736-SPO-GB

PATIENT
  Age: 85 Year
  Weight: 70 kg

DRUGS (8)
  1. ARICEPT [Suspect]
     Indication: DEMENTIA ALZHEIMER'S TYPE
     Dosage: 5 MG, ORAL
     Route: 048
     Dates: start: 20061013, end: 20061020
  2. ANASTROZOLE [Concomitant]
  3. ATENOLOL [Concomitant]
  4. CALCIUM LACTATE [Concomitant]
  5. MEMANTINE HCL [Concomitant]
  6. ACETAMINOPHEN [Concomitant]
  7. QUININE SULFATE [Concomitant]
  8. TRAMADOL HCL [Concomitant]

REACTIONS (2)
  - HALLUCINATIONS, MIXED [None]
  - PSYCHOTIC DISORDER [None]
